FAERS Safety Report 9015616 (Version 1)
Quarter: 2013Q1

REPORT INFORMATION
  Report Type: Spontaneous
  Country: JP (occurrence: None)
  Receive Date: 20130102
  Receipt Date: 20130102
  Transmission Date: 20140127
  Serious: Yes (Other)
  Sender: FDA-Public Use
  Company Number: DSA_61605_2012

PATIENT
  Age: 55 Year
  Sex: Female

DRUGS (6)
  1. FLUOROURACIL (FLUOROURACIL) [Suspect]
     Indication: OESOPHAGEAL CANCER METASTATIC
     Dosage: (800 (NOT OTHERWISE SPECIFIED))
     Dates: end: 200801
  2. CISPLATIN (CISPLATIN) [Suspect]
     Indication: OESOPHAGEAL CANCER METASTATIC
     Dosage: (80 (NOT OTHERWISE SPECIFIED))
     Dates: start: 200801
  3. DOCETAXEL (DOCETAXEL) [Suspect]
     Indication: OESOPHAGEAL CARCINOMA
     Dates: start: 2008
  4. DOCETAXEL (DOCETAXEL) [Suspect]
     Indication: NON-SMALL CELL LUNG CANCER
     Dates: start: 2008
  5. GIMERACIL/OTERACIL POTASSIUM/TEGAFUR [Suspect]
     Indication: OESOPHAGEAL CARCINOMA
     Dates: start: 2008
  6. GIMERACIL/OTERACIL POTASSIUM/TEGAFUR [Suspect]
     Indication: NON-SMALL CELL LUNG CANCER
     Dates: start: 2008

REACTIONS (4)
  - Gastrointestinal disorder [None]
  - Pyrexia [None]
  - Decreased appetite [None]
  - Diarrhoea [None]
